FAERS Safety Report 4513765-5 (Version None)
Quarter: 2004Q4

REPORT INFORMATION
  Report Type: 
  Country: None (occurrence: None)
  Receive Date: 20041130
  Receipt Date: 20041021
  Transmission Date: 20050328
  Serious: No
  Sender: FDA-Public Use
  Company Number: US-GLAXOSMITHKLINE-A0530786A

PATIENT
  Age: 33 Year
  Sex: Female

DRUGS (2)
  1. WELLBUTRIN XL [Suspect]
     Indication: DEPRESSION
     Dosage: 450MG PER DAY
     Route: 048
     Dates: start: 20040114
  2. LAMICTAL [Concomitant]
     Indication: BIPOLAR DISORDER
     Route: 048
     Dates: start: 20040128

REACTIONS (2)
  - DRUG INEFFECTIVE [None]
  - STOOL ANALYSIS ABNORMAL [None]
